FAERS Safety Report 12803997 (Version 2)
Quarter: 2016Q4

REPORT INFORMATION
  Report Type: Spontaneous
  Country: DE (occurrence: DE)
  Receive Date: 20161003
  Receipt Date: 20161018
  Transmission Date: 20170207
  Serious: Yes (Other)
  Sender: FDA-Public Use
  Company Number: DE-MYLANLABS-2016M1041788

PATIENT

DRUGS (2)
  1. VENLAFAXINE [Suspect]
     Active Substance: VENLAFAXINE HYDROCHLORIDE
     Indication: DEPRESSION
     Dosage: 1 DF, QD
  2. ORAYCEA [Interacting]
     Active Substance: DOXYCYCLINE
     Indication: ROSACEA
     Dosage: UNK, QD (0-0-1-0)
     Route: 048
     Dates: start: 20160907, end: 20160919

REACTIONS (5)
  - Somnolence [Recovered/Resolved]
  - Fatigue [Recovered/Resolved]
  - Apathy [Recovered/Resolved]
  - Depressed mood [Recovered/Resolved]
  - Drug interaction [Recovered/Resolved]

NARRATIVE: CASE EVENT DATE: 20160909
